FAERS Safety Report 10695567 (Version 1)
Quarter: 2015Q1

REPORT INFORMATION
  Report Type: Spontaneous
  Country: US (occurrence: None)
  Receive Date: 20150105
  Receipt Date: 20150105
  Transmission Date: 20150721
  Serious: Yes (Life-Threatening)
  Sender: FDA-Public Use
  Company Number: 54973 AE#1589

PATIENT

DRUGS (2)
  1. COLD N COUGH 4 KIDS [Suspect]
     Active Substance: HOMEOPATHICS
     Indication: PYREXIA
     Dosage: UNKNOWN DOSAGE
  2. COLD N COUGH 4 KIDS [Suspect]
     Active Substance: HOMEOPATHICS
     Indication: NASOPHARYNGITIS
     Dosage: UNKNOWN DOSAGE

REACTIONS (2)
  - Dry throat [None]
  - Speech disorder [None]

NARRATIVE: CASE EVENT DATE: 20141217
